FAERS Safety Report 7474971-3 (Version None)
Quarter: 2011Q1

REPORT INFORMATION
  Report Type: 
  Country: None (occurrence: None)
  Receive Date: 20110302
  Receipt Date: 20100915
  Transmission Date: 20110831
  Serious: Yes (Other)
  Sender: FDA-Public Use
  Company Number: 163-21880-10091843

PATIENT
  Age: 60 Year
  Sex: Female

DRUGS (3)
  1. REVLIMID [Suspect]
     Indication: MULTIPLE MYELOMA
     Dosage: 25 MG, 1 IN 1 D, PO; 15MG-25MG, PO; 10 MG, DAILY X 21 DAYS, PO
     Route: 048
     Dates: start: 20090901
  2. REVLIMID [Suspect]
     Indication: MULTIPLE MYELOMA
     Dosage: 25 MG, 1 IN 1 D, PO; 15MG-25MG, PO; 10 MG, DAILY X 21 DAYS, PO
     Route: 048
     Dates: start: 20100401, end: 20100601
  3. REVLIMID [Suspect]
     Indication: MULTIPLE MYELOMA
     Dosage: 25 MG, 1 IN 1 D, PO; 15MG-25MG, PO; 10 MG, DAILY X 21 DAYS, PO
     Route: 048
     Dates: start: 20070401

REACTIONS (1)
  - MASS [None]
